FAERS Safety Report 10786159 (Version 1)
Quarter: 2015Q1

REPORT INFORMATION
  Report Type: Other
  Country: US (occurrence: US)
  Receive Date: 20150211
  Receipt Date: 20150211
  Transmission Date: 20150721
  Serious: Yes (Hospitalization)
  Sender: FDA-Public Use
  Company Number: US-ENDO PHARMACEUTICALS INC-DIVA20150001

PATIENT
  Age: 53 Year
  Sex: Male

DRUGS (6)
  1. DIVALPROEX SODIUM DELAYED-RELEASE [Suspect]
     Active Substance: DIVALPROEX SODIUM
     Indication: SCHIZOPHRENIA
     Route: 048
  2. BENZTROPINE MESYLATE TABLETS 2MG [Suspect]
     Active Substance: BENZTROPINE MESYLATE
     Indication: BIPOLAR DISORDER
     Dosage: UNKNOWN
     Route: 048
  3. DIVALPROEX SODIUM DELAYED-RELEASE [Suspect]
     Active Substance: DIVALPROEX SODIUM
     Indication: SUICIDE ATTEMPT
  4. BENZTROPINE MESYLATE TABLETS 2MG [Suspect]
     Active Substance: BENZTROPINE MESYLATE
     Indication: SUICIDE ATTEMPT
  5. DIVALPROEX SODIUM DELAYED-RELEASE [Suspect]
     Active Substance: DIVALPROEX SODIUM
     Indication: BIPOLAR DISORDER
     Dosage: UNKNOWN
     Route: 048
  6. BENZTROPINE MESYLATE TABLETS 2MG [Suspect]
     Active Substance: BENZTROPINE MESYLATE
     Indication: SCHIZOPHRENIA
     Route: 048

REACTIONS (3)
  - Intentional overdose [Recovered/Resolved]
  - Suicide attempt [Recovered/Resolved]
  - Nephrogenic diabetes insipidus [Recovered/Resolved]
